FAERS Safety Report 8927774 (Version 3)
Quarter: 2013Q3

REPORT INFORMATION
  Report Type: Report from Study
  Country: DE (occurrence: DE)
  Receive Date: 20121127
  Receipt Date: 20130823
  Transmission Date: 20140515
  Serious: Yes (Hospitalization)
  Sender: FDA-Public Use
  Company Number: PHHO2012DE016433

PATIENT
  Age: 60 Year
  Sex: Female

DRUGS (4)
  1. FTY [Suspect]
     Indication: MULTIPLE SCLEROSIS
     Dosage: 1 DF, UNK
     Route: 048
     Dates: start: 20121112, end: 20121120
  2. VOLTAREN DISPERS ^GEIGY^ [Concomitant]
     Indication: BACK PAIN
     Dosage: 46.5 MG, TID
     Route: 048
     Dates: start: 20121112
  3. PANTAZOL [Concomitant]
     Indication: GASTROOESOPHAGEAL REFLUX DISEASE
     Dosage: 40 MG, UNK
     Route: 048
     Dates: start: 20121112
  4. FOSAMAX [Concomitant]
     Indication: OSTEOPOROSIS
     Dosage: 200 MG, UNK
     Dates: start: 20121108

REACTIONS (2)
  - Bradycardia [Recovered/Resolved]
  - Electrocardiogram QT prolonged [Recovered/Resolved]
